FAERS Safety Report 7896088-6 (Version None)
Quarter: 2011Q4

REPORT INFORMATION
  Report Type: 
  Country: None (occurrence: None)
  Receive Date: 20111104
  Receipt Date: 20111104
  Transmission Date: 20120403
  Serious: Yes (Other)
  Sender: FDA-Public Use
  Company Number: None

PATIENT
  Age: 65 Year
  Sex: Female

DRUGS (3)
  1. ACTONEL [Suspect]
     Indication: OSTEOPOROSIS
     Dosage: 150MG MONTHLY FOR 3 MO. ORAL
     Route: 048
     Dates: start: 20110802
  2. ACTONEL [Suspect]
     Indication: OSTEOPOROSIS
     Dosage: 150MG MONTHLY FOR 3 MO. ORAL
     Route: 048
     Dates: start: 20110601
  3. ACTONEL [Suspect]
     Indication: OSTEOPOROSIS
     Dosage: 150MG MONTHLY FOR 3 MO. ORAL
     Route: 048
     Dates: start: 20110701

REACTIONS (3)
  - HEADACHE [None]
  - ARTHRALGIA [None]
  - ABDOMINAL PAIN [None]
